FAERS Safety Report 12961779 (Version 1)
Quarter: 2016Q4

REPORT INFORMATION
  Report Type: Spontaneous
  Country: US (occurrence: US)
  Receive Date: 20161121
  Receipt Date: 20161121
  Transmission Date: 20170207
  Serious: No
  Sender: FDA-Public Use
  Company Number: US-PFIZER INC-2016537965

PATIENT
  Sex: Male

DRUGS (2)
  1. GABAPENTIN. [Concomitant]
     Active Substance: GABAPENTIN
     Indication: PERONEAL NERVE PALSY
     Dosage: UNK
  2. LYRICA [Suspect]
     Active Substance: PREGABALIN
     Dosage: UNK

REACTIONS (4)
  - Swelling [Not Recovered/Not Resolved]
  - Motor dysfunction [Unknown]
  - Condition aggravated [Not Recovered/Not Resolved]
  - Fall [Unknown]
